FAERS Safety Report 6748543-X (Version None)
Quarter: 2010Q2

REPORT INFORMATION
  Report Type: 
  Country: None (occurrence: None)
  Receive Date: 20100601
  Receipt Date: 20100521
  Transmission Date: 20101027
  Serious: Yes (Other)
  Sender: FDA-Public Use
  Company Number: DK-JNJFOC-20100508128

PATIENT
  Sex: Female

DRUGS (1)
  1. RISPERDAL CONSTA [Suspect]
     Indication: INJURY ASSOCIATED WITH DEVICE
     Route: 030

REACTIONS (5)
  - ACCIDENT AT WORK [None]
  - DEVICE MALFUNCTION [None]
  - EXPOSURE TO CONTAMINATED DEVICE [None]
  - INJURY ASSOCIATED WITH DEVICE [None]
  - PRODUCT QUALITY ISSUE [None]
